FAERS Safety Report 5333855-7 (Version None)
Quarter: 2007Q2

REPORT INFORMATION
  Report Type: 
  Country: None (occurrence: None)
  Receive Date: 20070306
  Receipt Date: 20060815
  Transmission Date: 20071010
  Serious: Yes (Hospitalization)
  Sender: FDA-Public Use
  Company Number: A03200605230

PATIENT
  Age: 89 Year
  Sex: Female
  Weight: 55.78 kg

DRUGS (8)
  1. PLAVIX [Suspect]
     Indication: CARDIAC OPERATION
     Dosage: 75 MG QD - ORAL
     Route: 048
  2. ISOSORBIDE MONONITRATE [Concomitant]
  3. POTASSIUM CHLORIDE [Concomitant]
  4. CLONIDINE [Concomitant]
  5. AMLODIPINE BESYLATE [Concomitant]
  6. METOPROLOL SUCCINATE [Concomitant]
  7. ATORVASTATIN [Concomitant]
  8. RAMIPRIL [Concomitant]

REACTIONS (1)
  - CONTUSION [None]
